FAERS Safety Report 12904126 (Version 1)
Quarter: 2016Q4

REPORT INFORMATION
  Report Type: Spontaneous
  Country: US (occurrence: US)
  Receive Date: 20161102
  Receipt Date: 20161102
  Transmission Date: 20170207
  Serious: Yes (Other)
  Sender: FDA-Public Use
  Company Number: US-AKORN PHARMACEUTICALS-2016AKN00724

PATIENT
  Sex: Female

DRUGS (2)
  1. MYORISAN [Suspect]
     Active Substance: ISOTRETINOIN
     Indication: ACNE
     Dosage: 10 TABLETS PER WEEK
     Route: 048
     Dates: start: 20160520, end: 20160621
  2. MYORISAN [Suspect]
     Active Substance: ISOTRETINOIN
     Dosage: 1 TABLETS, 1X/DAY
     Route: 048
     Dates: start: 20160622

REACTIONS (2)
  - Stress [Recovering/Resolving]
  - Anxiety [Recovering/Resolving]

NARRATIVE: CASE EVENT DATE: 2016
